FAERS Safety Report 8556279-8 (Version None)
Quarter: 2012Q3

REPORT INFORMATION
  Report Type: 
  Country: None (occurrence: None)
  Receive Date: 20120719
  Receipt Date: 20120710
  Transmission Date: 20120928
  Serious: Yes (Hospitalization)
  Sender: FDA-Public Use
  Company Number: ABR_00541_2012

PATIENT
  Sex: Female

DRUGS (1)
  1. ERYTHROMYCIN [Suspect]
     Indication: SALPINGITIS
     Dosage: 1 G QD INTRAVENOUS (NOT OTHERWISE SPECIFIED)
     Route: 042
     Dates: start: 20120519, end: 20120501

REACTIONS (4)
  - HYPERHIDROSIS [None]
  - VOMITING [None]
  - BLOOD PRESSURE DECREASED [None]
  - MALAISE [None]
